FAERS Safety Report 18547775 (Version 2)
Quarter: 2020Q4

REPORT INFORMATION
  Report Type: Spontaneous
  Country: US (occurrence: US)
  Receive Date: 20201125
  Receipt Date: 20201126
  Transmission Date: 20210114
  Serious: No
  Sender: FDA-Public Use
  Company Number: US-PFIZER INC-2020459452

PATIENT
  Age: 79 Year
  Sex: Male
  Weight: 86.18 kg

DRUGS (2)
  1. ATORVASTATIN CALCIUM. [Suspect]
     Active Substance: ATORVASTATIN CALCIUM
     Indication: BLOOD CHOLESTEROL INCREASED
  2. ATORVASTATIN CALCIUM. [Suspect]
     Active Substance: ATORVASTATIN CALCIUM
     Indication: BLOOD CHOLESTEROL ABNORMAL
     Dosage: 20 MG, 1X/DAY  (20MG ONE TABLET DAILY BY MOUTH)
     Route: 048

REACTIONS (5)
  - Urticaria [Unknown]
  - Weight increased [Unknown]
  - Diarrhoea [Unknown]
  - Body height decreased [Unknown]
  - Rash [Unknown]
